FAERS Safety Report 6046333-7 (Version None)
Quarter: 2009Q1

REPORT INFORMATION
  Report Type: 
  Country: None (occurrence: None)
  Receive Date: 20090121
  Receipt Date: 20090121
  Transmission Date: 20090719
  Serious: Yes (Hospitalization, Other)
  Sender: FDA-Public Use
  Company Number: None

PATIENT
  Age: 21 Year
  Sex: Male
  Weight: 71 kg

DRUGS (1)
  1. IBANDRONATE SODIUM [Suspect]
     Indication: OSTEOPENIA
     Dosage: ONCE PO SINGLE DOSE
     Route: 048

REACTIONS (4)
  - ABASIA [None]
  - ARTHRALGIA [None]
  - BONE PAIN [None]
  - PYREXIA [None]
